FAERS Safety Report 9379886 (Version 1)
Quarter: 2013Q3

REPORT INFORMATION
  Report Type: Spontaneous
  Country: IT (occurrence: IT)
  Receive Date: 20130702
  Receipt Date: 20130702
  Transmission Date: 20140515
  Serious: Yes (Other)
  Sender: FDA-Public Use
  Company Number: IT-BAYER-2013-073678

PATIENT
  Age: 49 Year
  Sex: Female

DRUGS (1)
  1. GADOVIST [Suspect]
     Indication: NUCLEAR MAGNETIC RESONANCE IMAGING BRAIN
     Dosage: 1 DF, ONCE
     Dates: start: 20130606, end: 20130606

REACTIONS (2)
  - Hypertensive crisis [Recovering/Resolving]
  - Erythema [Recovering/Resolving]
